FAERS Safety Report 7180367-4 (Version None)
Quarter: 2010Q4

REPORT INFORMATION
  Report Type: 
  Country: None (occurrence: None)
  Receive Date: 20101221
  Receipt Date: 20101214
  Transmission Date: 20110411
  Serious: Yes (Other)
  Sender: FDA-Public Use
  Company Number: A0900537A

PATIENT
  Age: 33 Year
  Sex: Female

DRUGS (3)
  1. COMBIVIR [Suspect]
     Indication: HIV INFECTION
     Route: 048
     Dates: start: 20090101
  2. PREZISTA [Suspect]
     Indication: HIV INFECTION
     Dosage: 1200MGD PER DAY
     Route: 048
     Dates: start: 20090101
  3. NORVIR [Suspect]
     Indication: HIV INFECTION
     Dosage: 200MGD PER DAY
     Route: 048
     Dates: start: 20090101

REACTIONS (2)
  - ABORTION SPONTANEOUS [None]
  - DRUG EXPOSURE DURING PREGNANCY [None]
